FAERS Safety Report 8862088 (Version 1)
Quarter: 2012Q4

REPORT INFORMATION
  Report Type: 
  Country: CH (occurrence: CH)
  Receive Date: 20121026
  Receipt Date: 20121026
  Transmission Date: 20130627
  Serious: Yes (Other)
  Sender: FDA-Public Use
  Company Number: CH-TEVA-365683ISR

PATIENT
  Age: 0 Year
  Sex: Male

DRUGS (3)
  1. ZOLPIDEM [Suspect]
     Route: 064
  2. TOPAMAX [Suspect]
     Dosage: 1 Dosage forms Daily;
     Route: 064
     Dates: end: 200903
  3. FLUCTINE [Suspect]
     Route: 064
     Dates: end: 200903

REACTIONS (3)
  - Hypoacusis [Not Recovered/Not Resolved]
  - Exposure during pregnancy [Recovered/Resolved]
  - Hypotension [Recovered/Resolved]
